FAERS Safety Report 6751168-3 (Version None)
Quarter: 2010Q2

REPORT INFORMATION
  Report Type: 
  Country: None (occurrence: None)
  Receive Date: 20100602
  Receipt Date: 20100527
  Transmission Date: 20101027
  Serious: Yes (Death, Hospitalization)
  Sender: FDA-Public Use
  Company Number: FR-BRISTOL-MYERS SQUIBB COMPANY-15125248

PATIENT
  Age: 50 Year
  Sex: Male

DRUGS (16)
  1. AMIKLIN INJ [Suspect]
     Indication: RESPIRATORY TRACT INFECTION
     Route: 042
     Dates: start: 20070323, end: 20070409
  2. HEPARIN SODIUM [Suspect]
     Route: 042
     Dates: end: 20070417
  3. TAZOCILLINE [Suspect]
     Indication: RESPIRATORY TRACT INFECTION
     Route: 042
     Dates: start: 20070327
  4. CIFLOX [Suspect]
     Indication: RESPIRATORY TRACT INFECTION
     Route: 042
     Dates: start: 20070401
  5. VANCOMYCIN [Suspect]
     Indication: RESPIRATORY TRACT INFECTION
     Route: 042
     Dates: start: 20070327, end: 20070403
  6. ZYVOXID [Suspect]
     Route: 042
     Dates: start: 20070403, end: 20070409
  7. HYPNOVEL [Concomitant]
  8. SUFENTA PRESERVATIVE FREE [Concomitant]
  9. NIMBEX [Concomitant]
  10. BUMEX [Concomitant]
  11. NORADRENALINE [Concomitant]
  12. ERYTHROCINE [Concomitant]
  13. SURBRONC [Concomitant]
  14. MOPRAL [Concomitant]
  15. LOVENOX [Concomitant]
  16. CALCIPARINE [Concomitant]

REACTIONS (7)
  - CYTOLYTIC HEPATITIS [None]
  - DERMATITIS EXFOLIATIVE [None]
  - INFECTIOUS MONONUCLEOSIS [None]
  - PANCYTOPENIA [None]
  - RASH [None]
  - RECTAL HAEMORRHAGE [None]
  - RENAL FAILURE ACUTE [None]
